FAERS Safety Report 17320589 (Version 1)
Quarter: 2020Q1

REPORT INFORMATION
  Report Type: Spontaneous
  Country: US (occurrence: US)
  Receive Date: 20200126
  Receipt Date: 20200126
  Transmission Date: 20200409
  Serious: No
  Sender: FDA-Public Use
  Company Number: US-ACORDA-ACO_157332_2019

PATIENT
  Age: 53 Year
  Sex: Female

DRUGS (3)
  1. AMPYRA [Suspect]
     Active Substance: DALFAMPRIDINE
     Indication: GAIT DISTURBANCE
     Dosage: UNK
     Route: 065
  2. DALFAMPRIDINE. [Suspect]
     Active Substance: DALFAMPRIDINE
     Indication: PRODUCT USED FOR UNKNOWN INDICATION
     Dosage: UNK
     Route: 065
  3. TYSABRI [Suspect]
     Active Substance: NATALIZUMAB
     Indication: MULTIPLE SCLEROSIS
     Dosage: 300 MILLIGRAM, MONTHLY (1 IN 4 WEEKS)
     Route: 065
     Dates: start: 20180525

REACTIONS (12)
  - Condition aggravated [Unknown]
  - Migraine [Unknown]
  - Head injury [Unknown]
  - Joint injury [Not Recovered/Not Resolved]
  - Buttock injury [Unknown]
  - Fall [Recovered/Resolved]
  - Pain [Unknown]
  - Fall [Recovered/Resolved]
  - Contusion [Not Recovered/Not Resolved]
  - Back injury [Unknown]
  - Gait disturbance [Unknown]
  - Musculoskeletal pain [Not Recovered/Not Resolved]

NARRATIVE: CASE EVENT DATE: 20190225
